FAERS Safety Report 25658219 (Version 1)
Quarter: 2025Q3

REPORT INFORMATION
  Report Type: Report from Study
  Country: US (occurrence: US)
  Receive Date: 20250808
  Receipt Date: 20250808
  Transmission Date: 20251020
  Serious: Yes (Hospitalization, Other)
  Sender: ABBVIE
  Company Number: US-ABBVIE-6403266

PATIENT
  Sex: Female

DRUGS (1)
  1. RISANKIZUMAB [Suspect]
     Active Substance: RISANKIZUMAB
     Indication: Psoriasis
     Route: 058
     Dates: end: 202503

REACTIONS (7)
  - Herpes zoster [Recovered/Resolved]
  - Lymphoedema [Unknown]
  - Breast cancer female [Unknown]
  - Neuralgia [Unknown]
  - Oedema peripheral [Unknown]
  - Pain in extremity [Unknown]
  - Limb discomfort [Unknown]
